FAERS Safety Report 7164173-2 (Version None)
Quarter: 2010Q4

REPORT INFORMATION
  Report Type: 
  Country: None (occurrence: None)
  Receive Date: 20101123
  Receipt Date: 20100728
  Transmission Date: 20110411
  Serious: No
  Sender: FDA-Public Use
  Company Number: 015698

PATIENT
  Sex: Female
  Weight: 109 kg

DRUGS (6)
  1. CIMZIA [Suspect]
     Indication: RHEUMATOID ARTHRITIS
     Dosage: SUBCUTANEOUS
     Route: 058
     Dates: start: 20100713
  2. SULINDAC [Concomitant]
  3. METHOTREXATE [Concomitant]
  4. XANAX [Concomitant]
  5. FOLIC ACID [Concomitant]
  6. PREDNISONE [Concomitant]

REACTIONS (3)
  - HYPOAESTHESIA ORAL [None]
  - PRURITUS [None]
  - RASH PRURITIC [None]
